FAERS Safety Report 11054552 (Version 1)
Quarter: 2015Q2

REPORT INFORMATION
  Report Type: Spontaneous
  Country: US (occurrence: US)
  Receive Date: 20150422
  Receipt Date: 20150422
  Transmission Date: 20150821
  Serious: Yes (Hospitalization)
  Sender: FDA-Public Use
  Company Number: US-JNJFOC-200204-1548

PATIENT
  Age: 26 Year
  Sex: Male

DRUGS (7)
  1. SUDAFED [Suspect]
     Active Substance: PSEUDOEPHEDRINE HYDROCHLORIDE
     Indication: SUICIDE ATTEMPT
     Dosage: DAILY DOSE TEXT: UNSPECIFIED
     Route: 048
     Dates: start: 20020408, end: 20020408
  2. ACETYLSALICYLIC ACID [Suspect]
     Active Substance: ASPIRIN
     Indication: SUICIDE ATTEMPT
     Dosage: DAILY DOSE TEXT: UNSPECIFIED
     Route: 048
     Dates: start: 20020408, end: 20020408
  3. SUDAFED [Suspect]
     Active Substance: PSEUDOEPHEDRINE HYDROCHLORIDE
     Route: 048
  4. PARACETAMOL [Suspect]
     Active Substance: ACETAMINOPHEN
     Indication: SUICIDE ATTEMPT
     Dosage: DAILY DOSE TEXT: UNSPECIFIED
     Route: 048
     Dates: start: 20020408, end: 20020408
  5. VENLAFAXINE HYDROCHLORIDE. [Suspect]
     Active Substance: VENLAFAXINE HYDROCHLORIDE
     Indication: SUICIDE ATTEMPT
     Dosage: DAILY DOSE TEXT: UNSPECIFIED
     Route: 048
     Dates: start: 20020408, end: 20020408
  6. GABAPENTIN. [Suspect]
     Active Substance: GABAPENTIN
     Indication: SUICIDE ATTEMPT
     Dosage: DAILY DOSE TEXT: UNSPECIFIED
     Route: 048
     Dates: start: 20020408, end: 20020408
  7. NAPROXEN SODIUM. [Suspect]
     Active Substance: NAPROXEN SODIUM
     Indication: SUICIDE ATTEMPT
     Dosage: DAILY DOSE TEXT: UNSPECIFIED
     Route: 048
     Dates: start: 20020408, end: 20020408

REACTIONS (5)
  - Alanine aminotransferase increased [Not Recovered/Not Resolved]
  - Gamma-glutamyltransferase increased [Not Recovered/Not Resolved]
  - Aspartate aminotransferase increased [Not Recovered/Not Resolved]
  - Blood creatine phosphokinase increased [Not Recovered/Not Resolved]
  - Intentional overdose [Unknown]

NARRATIVE: CASE EVENT DATE: 20020408
